FAERS Safety Report 17537464 (Version 1)
Quarter: 2020Q1

REPORT INFORMATION
  Report Type: Spontaneous
  Country: US (occurrence: US)
  Receive Date: 20200313
  Receipt Date: 20200313
  Transmission Date: 20200409
  Serious: No
  Sender: FDA-Public Use
  Company Number: US-VERTEX PHARMACEUTICALS-2020-004273

PATIENT
  Age: 28 Year
  Sex: Female

DRUGS (1)
  1. TRIKAFTA [Suspect]
     Active Substance: ELEXACAFTOR\IVACAFTOR\TEZACAFTOR
     Indication: CYSTIC FIBROSIS
     Dosage: 100MG/50MG/75MG (1 PILL AM) 150MG(1 PILL NIGHT)
     Route: 048
     Dates: start: 20200117

REACTIONS (5)
  - Chromaturia [Unknown]
  - Flatulence [Recovered/Resolved]
  - Headache [Recovered/Resolved]
  - Sputum increased [Recovered/Resolved]
  - Ocular discomfort [Recovered/Resolved]

NARRATIVE: CASE EVENT DATE: 2020
